FAERS Safety Report 5219108-6 (Version None)
Quarter: 2007Q1

REPORT INFORMATION
  Report Type: 
  Country: None (occurrence: None)
  Receive Date: 20070124
  Receipt Date: 20070124
  Transmission Date: 20070707
  Serious: Yes (Other)
  Sender: FDA-Public Use
  Company Number: None

PATIENT
  Age: 55 Year
  Sex: Female
  Weight: 77.1115 kg

DRUGS (1)
  1. LEVEMIR [Suspect]
     Indication: DIABETES MELLITUS INSULIN-DEPENDENT
     Dosage: 8 UNITS  2X A DAY  INJECTION  SUBCUTANEOUS
     Route: 058
     Dates: start: 20070101, end: 20070109

REACTIONS (5)
  - DRUG HYPERSENSITIVITY [None]
  - INJECTION SITE ERYTHEMA [None]
  - INJECTION SITE PAIN [None]
  - INJECTION SITE SWELLING [None]
  - INJECTION SITE WARMTH [None]
